FAERS Safety Report 24931784 (Version 1)
Quarter: 2025Q1

REPORT INFORMATION
  Report Type: Report from Study
  Country: JP (occurrence: JP)
  Receive Date: 20250205
  Receipt Date: 20250205
  Transmission Date: 20250409
  Serious: No
  Sender: EXELIXIS
  Company Number: JP-TAKEDA-2024TJP009026

PATIENT
  Age: 67 Year
  Sex: Male
  Weight: 50 kg

DRUGS (11)
  1. CABOMETYX [Suspect]
     Active Substance: CABOZANTINIB S-MALATE
     Indication: Hepatocellular carcinoma
     Route: 065
     Dates: start: 20230530, end: 20230606
  2. CABOMETYX [Suspect]
     Active Substance: CABOZANTINIB S-MALATE
     Route: 065
     Dates: start: 20230613, end: 20230624
  3. CABOMETYX [Suspect]
     Active Substance: CABOZANTINIB S-MALATE
     Route: 065
     Dates: start: 20230711, end: 20230724
  4. CABOMETYX [Suspect]
     Active Substance: CABOZANTINIB S-MALATE
     Route: 065
     Dates: start: 20230815, end: 20230906
  5. CABOMETYX [Suspect]
     Active Substance: CABOZANTINIB S-MALATE
     Route: 065
     Dates: start: 20230919, end: 20231128
  6. CORTRIL [Concomitant]
     Active Substance: HYDROCORTISONE
     Indication: Hepatocellular carcinoma
     Route: 065
     Dates: start: 20230530, end: 20231128
  7. URSODIOL [Concomitant]
     Active Substance: URSODIOL
     Indication: Hepatocellular carcinoma
     Route: 065
     Dates: start: 20230530, end: 20231128
  8. AMLODIPINE [Concomitant]
     Active Substance: AMLODIPINE BESYLATE
     Indication: Hepatocellular carcinoma
     Route: 065
     Dates: start: 20230530, end: 20231128
  9. LANSOPRAZOLE [Concomitant]
     Active Substance: LANSOPRAZOLE
     Indication: Hepatocellular carcinoma
     Route: 065
     Dates: start: 20230530, end: 20231128
  10. OLMESARTAN MEDOXOMIL [Concomitant]
     Active Substance: OLMESARTAN MEDOXOMIL
     Indication: Hepatocellular carcinoma
     Route: 065
     Dates: start: 20230530, end: 20231128
  11. TRICHLORMETHIAZIDE [Concomitant]
     Active Substance: TRICHLORMETHIAZIDE
     Indication: Hepatocellular carcinoma
     Route: 065
     Dates: start: 20230530, end: 20231128

REACTIONS (3)
  - Hepatic function abnormal [Recovered/Resolved]
  - Hepatic function abnormal [Recovered/Resolved]
  - Diarrhoea [Recovered/Resolved]

NARRATIVE: CASE EVENT DATE: 20230606
